FAERS Safety Report 5508509-4 (Version None)
Quarter: 2007Q4

REPORT INFORMATION
  Report Type: 
  Country: None (occurrence: None)
  Receive Date: 20071031
  Receipt Date: 20070814
  Transmission Date: 20080405
  Serious: No
  Sender: FDA-Public Use
  Company Number: 200711766BWH

PATIENT
  Age: 57 Year
  Sex: Male
  Weight: 65.7716 kg

DRUGS (6)
  1. NEXAVAR [Suspect]
     Indication: HEPATIC NEOPLASM MALIGNANT
     Dosage: 400 MG BID ORAL
     Route: 048
     Dates: start: 20070501
  2. NEXAVAR [Suspect]
     Indication: RENAL CELL CARCINOMA STAGE UNSPECIFIED
     Dosage: 400 MG BID ORAL
     Route: 048
     Dates: start: 20070501
  3. LEXIVA [Concomitant]
  4. NORVIR [Concomitant]
  5. TRUVADA [Concomitant]
  6. ADVAIR DISKUS 100/50 [Concomitant]

REACTIONS (5)
  - ACNE [None]
  - ASTHENIA [None]
  - HYPERKERATOSIS [None]
  - INCREASED TENDENCY TO BRUISE [None]
  - NAUSEA [None]
